FAERS Safety Report 20957556 (Version 1)
Quarter: 2022Q2

REPORT INFORMATION
  Report Type: Spontaneous
  Country: US (occurrence: US)
  Receive Date: 20220614
  Receipt Date: 20220614
  Transmission Date: 20220721
  Serious: No
  Sender: FDA-Public Use
  Company Number: US-PFIZER INC-202101327580

PATIENT
  Age: 51 Year
  Sex: Male
  Weight: 105.69 kg

DRUGS (1)
  1. INSPRA [Suspect]
     Active Substance: EPLERENONE
     Indication: Cardiac failure congestive
     Dosage: 25 MG, 1X/DAY
     Route: 048

REACTIONS (2)
  - Off label use [Unknown]
  - COVID-19 [Unknown]
